FAERS Safety Report 25571663 (Version 1)
Quarter: 2025Q3

REPORT INFORMATION
  Report Type: Spontaneous
  Country: US (occurrence: US)
  Receive Date: 20250717
  Receipt Date: 20250717
  Transmission Date: 20251021
  Serious: Yes (Hospitalization)
  Sender: ROCHE
  Company Number: US-ROCHE-10000339164

PATIENT
  Age: 25 Year
  Sex: Female

DRUGS (2)
  1. RITUXIMAB [Suspect]
     Active Substance: RITUXIMAB
     Indication: Antiphospholipid syndrome
     Route: 065
  2. METHYLPREDNISOLONE [Suspect]
     Active Substance: METHYLPREDNISOLONE
     Indication: Antiphospholipid syndrome
     Route: 065

REACTIONS (6)
  - Septic shock [Unknown]
  - Bacteraemia [Unknown]
  - Fungaemia [Unknown]
  - Pneumonia [Unknown]
  - Lung abscess [Unknown]
  - Empyema [Unknown]
